FAERS Safety Report 9637335 (Version 2)
Quarter: 2013Q4

REPORT INFORMATION
  Report Type: Spontaneous
  Country: FR (occurrence: FR)
  Receive Date: 20131022
  Receipt Date: 20131022
  Transmission Date: 20140711
  Serious: Yes (Other)
  Sender: FDA-Public Use
  Company Number: FR-JNJFOC-20130900897

PATIENT
  Age: 24 Year
  Sex: Female
  Weight: 77 kg

DRUGS (6)
  1. REMICADE [Suspect]
     Indication: CROHN^S DISEASE
     Route: 042
     Dates: start: 20120828, end: 20130828
  2. REMICADE [Suspect]
     Indication: CROHN^S DISEASE
     Route: 042
     Dates: start: 201304
  3. REMICADE [Suspect]
     Indication: CROHN^S DISEASE
     Route: 042
     Dates: start: 201202, end: 201304
  4. METOJECT [Concomitant]
     Indication: ARTHRALGIA
     Route: 065
  5. SOLU MEDROL [Concomitant]
     Indication: PREMEDICATION
     Route: 042
  6. POLARAMIN [Concomitant]
     Indication: PREMEDICATION
     Route: 042

REACTIONS (7)
  - Chest pain [Recovered/Resolved]
  - Hypotension [Recovered/Resolved]
  - Dyspnoea [Recovered/Resolved]
  - Tachycardia [Recovered/Resolved]
  - Palpitations [Recovered/Resolved]
  - Infusion related reaction [Recovered/Resolved]
  - Skin reaction [Unknown]
